FAERS Safety Report 5236876-8 (Version None)
Quarter: 2007Q1

REPORT INFORMATION
  Report Type: 
  Country: None (occurrence: None)
  Receive Date: 20061208
  Receipt Date: 20050225
  Transmission Date: 20070707
  Serious: Yes (Other)
  Sender: FDA-Public Use
  Company Number: 2005UW03130

PATIENT
  Sex: Male

DRUGS (1)
  1. CRESTOR [Suspect]
     Dosage: 10 MG  ONCE  PO
     Route: 048

REACTIONS (2)
  - FEELING ABNORMAL [None]
  - HYPERSENSITIVITY [None]
